FAERS Safety Report 6343096-2 (Version None)
Quarter: 2009Q3

REPORT INFORMATION
  Report Type: 
  Country: None (occurrence: None)
  Receive Date: 20090908
  Receipt Date: 20090828
  Transmission Date: 20100115
  Serious: Yes (Hospitalization, Other)
  Sender: FDA-Public Use
  Company Number: US-BAYER-200922017NA

PATIENT
  Age: 39 Year
  Sex: Female
  Weight: 105 kg

DRUGS (4)
  1. YAZ [Suspect]
     Indication: DYSFUNCTIONAL UTERINE BLEEDING
     Route: 048
     Dates: start: 20070401, end: 20070724
  2. SYNTHROID [Concomitant]
     Indication: HYPOTHYROIDISM
     Route: 048
  3. ASCORBIC ACID [Concomitant]
  4. MULTI-VITAMIN [Concomitant]

REACTIONS (11)
  - ANXIETY [None]
  - CHEST PAIN [None]
  - DYSPNOEA [None]
  - FATIGUE [None]
  - FEAR [None]
  - HYPERHIDROSIS [None]
  - INJURY [None]
  - MUSCULOSKELETAL PAIN [None]
  - NO ADVERSE EVENT [None]
  - PAIN [None]
  - PULMONARY EMBOLISM [None]
